FAERS Safety Report 8869731 (Version 2)
Quarter: 2012Q4

REPORT INFORMATION
  Report Type: Report from Study
  Country: US (occurrence: US)
  Receive Date: 20121028
  Receipt Date: 20121231
  Transmission Date: 20130627
  Serious: Yes (Hospitalization, Other)
  Sender: FDA-Public Use
  Company Number: US-JNJFOC-20120814359

PATIENT
  Age: 72 Year
  Sex: Female

DRUGS (58)
  1. REMICADE [Suspect]
     Indication: RHEUMATOID ARTHRITIS
     Dosage: patient took only 1 infusion
     Route: 042
     Dates: start: 20120709, end: 20120709
  2. PRILOSEC [Concomitant]
     Indication: BARRETT^S OESOPHAGUS
     Route: 065
     Dates: start: 20090721
  3. PRILOSEC [Concomitant]
     Indication: BARRETT^S OESOPHAGUS
     Route: 065
     Dates: start: 20101211
  4. PRILOSEC [Concomitant]
     Indication: BARRETT^S OESOPHAGUS
     Route: 065
     Dates: start: 20120824
  5. PRILOSEC [Concomitant]
     Indication: BARRETT^S OESOPHAGUS
     Route: 065
     Dates: start: 20110228
  6. PRILOSEC [Concomitant]
     Indication: GASTROOESOPHAGEAL REFLUX DISEASE
     Route: 065
     Dates: start: 20090721
  7. PRILOSEC [Concomitant]
     Indication: GASTROOESOPHAGEAL REFLUX DISEASE
     Route: 065
     Dates: start: 20120824
  8. PRILOSEC [Concomitant]
     Indication: GASTROOESOPHAGEAL REFLUX DISEASE
     Route: 065
     Dates: start: 20110228
  9. PRILOSEC [Concomitant]
     Indication: GASTROOESOPHAGEAL REFLUX DISEASE
     Route: 065
     Dates: start: 20101211
  10. LEVOTHYROXINE [Concomitant]
     Indication: HYPOTHYROIDISM
     Route: 065
     Dates: start: 20120824
  11. LEVOTHYROXINE [Concomitant]
     Indication: HYPOTHYROIDISM
     Route: 065
     Dates: start: 20110228
  12. LEVOTHYROXINE [Concomitant]
     Indication: HYPOTHYROIDISM
     Route: 065
     Dates: start: 20101211
  13. LEVOTHYROXINE [Concomitant]
     Indication: HYPOTHYROIDISM
     Route: 065
     Dates: start: 20090721
  14. METHOTREXATE [Concomitant]
     Indication: PSORIATIC ARTHROPATHY
     Route: 065
     Dates: start: 20120824
  15. METHOTREXATE [Concomitant]
     Indication: PSORIATIC ARTHROPATHY
     Route: 065
     Dates: start: 20101211
  16. METHOTREXATE [Concomitant]
     Indication: PSORIATIC ARTHROPATHY
     Route: 065
     Dates: start: 20110228
  17. METHOTREXATE [Concomitant]
     Indication: RHEUMATOID ARTHRITIS
     Route: 065
     Dates: start: 20101211
  18. METHOTREXATE [Concomitant]
     Indication: RHEUMATOID ARTHRITIS
     Route: 065
     Dates: start: 20110228
  19. METHOTREXATE [Concomitant]
     Indication: RHEUMATOID ARTHRITIS
     Route: 065
     Dates: start: 20120824
  20. FOLIC ACID [Concomitant]
     Indication: PSORIATIC ARTHROPATHY
     Route: 065
     Dates: start: 20101211
  21. FOLIC ACID [Concomitant]
     Indication: PSORIATIC ARTHROPATHY
     Route: 065
     Dates: start: 20090721
  22. FOLIC ACID [Concomitant]
     Indication: PSORIATIC ARTHROPATHY
     Route: 065
     Dates: start: 20110228
  23. FOLIC ACID [Concomitant]
     Indication: RHEUMATOID ARTHRITIS
     Route: 065
     Dates: start: 20110228
  24. FOLIC ACID [Concomitant]
     Indication: RHEUMATOID ARTHRITIS
     Route: 065
     Dates: start: 20090721
  25. FOLIC ACID [Concomitant]
     Indication: RHEUMATOID ARTHRITIS
     Route: 065
     Dates: start: 20101211
  26. VITAMIN D [Concomitant]
     Indication: OSTEOPOROSIS
     Route: 065
     Dates: start: 20090721
  27. VITAMIN D [Concomitant]
     Indication: OSTEOPOROSIS
     Route: 065
     Dates: start: 20110228
  28. VITAMIN D [Concomitant]
     Indication: OSTEOPOROSIS
     Route: 065
     Dates: start: 20101211
  29. VITAMIN D [Concomitant]
     Indication: OSTEOPOROSIS
     Route: 065
     Dates: start: 20120824
  30. VITAMIN D3 [Concomitant]
     Route: 065
  31. VITAMIN B12 [Concomitant]
     Route: 065
     Dates: start: 20110228
  32. VITAMIN B12 [Concomitant]
     Route: 065
     Dates: start: 20090721
  33. VITAMIN B12 [Concomitant]
     Route: 065
     Dates: start: 20101211
  34. VITAMIN B6 [Concomitant]
     Route: 065
  35. MAGNESIUM [Concomitant]
     Route: 065
     Dates: start: 20101211
  36. MAGNESIUM [Concomitant]
     Route: 065
     Dates: start: 20110228
  37. MAGNESIUM [Concomitant]
     Route: 065
     Dates: start: 20090721
  38. POTASSIUM [Concomitant]
     Route: 065
     Dates: start: 20090721
  39. POTASSIUM [Concomitant]
     Route: 065
     Dates: start: 20110228
  40. POTASSIUM [Concomitant]
     Route: 065
     Dates: start: 20101211
  41. ALL OTHER THERAPEUTICS [Concomitant]
     Route: 065
  42. BIOTIN [Concomitant]
     Route: 065
     Dates: start: 20101211
  43. BIOTIN [Concomitant]
     Route: 065
     Dates: start: 20110228
  44. BIOTIN [Concomitant]
     Route: 065
     Dates: start: 20090721
  45. CINNAMON [Concomitant]
     Route: 065
     Dates: start: 20110228
  46. CINNAMON [Concomitant]
     Route: 065
     Dates: start: 20101211
  47. CINNAMON [Concomitant]
     Route: 065
     Dates: start: 20090721
  48. GLUCOSAMINE CHONDROITIN SULFATE [Concomitant]
     Route: 065
     Dates: start: 20110228
  49. GLUCOSAMINE CHONDROITIN SULFATE [Concomitant]
     Dosage: 500/400
     Route: 065
     Dates: start: 20090721
  50. GLUCOSAMINE CHONDROITIN SULFATE [Concomitant]
     Route: 065
     Dates: start: 20101211
  51. MVI [Concomitant]
     Route: 065
     Dates: start: 20090721
  52. MVI [Concomitant]
     Route: 065
     Dates: start: 20101211
  53. MVI [Concomitant]
     Route: 065
     Dates: start: 20110228
  54. MVI [Concomitant]
     Route: 065
     Dates: start: 20120824
  55. CITRACAL [Concomitant]
     Route: 065
     Dates: start: 20120824
  56. CITRACAL [Concomitant]
     Route: 065
     Dates: start: 20110228
  57. CITRACAL [Concomitant]
     Route: 065
     Dates: start: 20090721
  58. CITRACAL [Concomitant]
     Route: 065
     Dates: start: 20101211

REACTIONS (1)
  - Pneumonia bacterial [Recovered/Resolved]
